FAERS Safety Report 18376170 (Version 1)
Quarter: 2020Q4

REPORT INFORMATION
  Report Type: Spontaneous
  Country: US (occurrence: US)
  Receive Date: 20201013
  Receipt Date: 20201013
  Transmission Date: 20210114
  Serious: No
  Sender: FDA-Public Use
  Company Number: US-TEVA-2020-US-1837107

PATIENT
  Age: 79 Year
  Sex: Male

DRUGS (1)
  1. DEFERASIROX. [Suspect]
     Active Substance: DEFERASIROX
     Indication: BLOOD IRON INCREASED
     Route: 065

REACTIONS (3)
  - Blood iron increased [Not Recovered/Not Resolved]
  - Drug ineffective [Unknown]
  - Bowel movement irregularity [Not Recovered/Not Resolved]
